FAERS Safety Report 10445039 (Version 4)
Quarter: 2015Q2

REPORT INFORMATION
  Report Type: Spontaneous
  Country: US (occurrence: US)
  Receive Date: 20140910
  Receipt Date: 20150626
  Transmission Date: 20150821
  Serious: Yes (Hospitalization, Other)
  Sender: FDA-Public Use
  Company Number: US-BAYER-2014-133435

PATIENT
  Age: 24 Year
  Sex: Female
  Weight: 70.75 kg

DRUGS (2)
  1. MIRENA [Suspect]
     Active Substance: LEVONORGESTREL
     Indication: CONTRACEPTION
     Dosage: 20 MCG/24HR, CONT
     Route: 015
     Dates: start: 20110922, end: 20130404
  2. PROZAC [Concomitant]
     Active Substance: FLUOXETINE HYDROCHLORIDE
     Dosage: 20 MG, UNK

REACTIONS (19)
  - Complication of device removal [None]
  - Pain [None]
  - Dizziness [None]
  - Vision blurred [None]
  - Back pain [None]
  - Scar [None]
  - Uterine perforation [None]
  - Device breakage [None]
  - Procedural pain [None]
  - Alopecia [None]
  - Pruritus [None]
  - Abdominal pain lower [None]
  - Abdominal pain [None]
  - Headache [None]
  - Breast tenderness [None]
  - Injury [None]
  - Dry skin [None]
  - Mood swings [None]
  - Nervousness [None]

NARRATIVE: CASE EVENT DATE: 2012
